FAERS Safety Report 21054759 (Version 1)
Quarter: 2022Q3

REPORT INFORMATION
  Report Type: Spontaneous
  Country: US (occurrence: US)
  Receive Date: 20220707
  Receipt Date: 20220707
  Transmission Date: 20221026
  Serious: No
  Sender: FDA-Public Use
  Company Number: US-PFIZER INC-PV202200015022

PATIENT
  Age: 32 Year
  Sex: Male

DRUGS (3)
  1. ABROCITINIB [Suspect]
     Active Substance: ABROCITINIB
     Indication: Dermatitis atopic
     Dosage: 1 DF, DAILY (1 PILL DAILY X 6 MOS)
  2. ABROCITINIB [Suspect]
     Active Substance: ABROCITINIB
     Dosage: 2 DF, DAILY (2 PILLS DAILY NOW X 2 MOS)
  3. DUPIXENT [Suspect]
     Active Substance: DUPILUMAB
     Dosage: UNK
     Dates: start: 2020

REACTIONS (1)
  - Dermatitis atopic [Not Recovered/Not Resolved]
